FAERS Safety Report 5124069-4 (Version None)
Quarter: 2006Q4

REPORT INFORMATION
  Report Type: 
  Country: None (occurrence: None)
  Receive Date: 20061010
  Receipt Date: 20051020
  Transmission Date: 20070319
  Serious: No
  Sender: FDA-Public Use
  Company Number: US-BRISTOL-MYERS SQUIBB COMPANY-13151758

PATIENT
  Age: 70 Year
  Sex: Male
  Weight: 109 kg

DRUGS (1)
  1. AVAPRO [Suspect]
     Indication: PROTEIN URINE PRESENT
     Dates: start: 20051001

REACTIONS (1)
  - BLOOD GLUCOSE INCREASED [None]
